FAERS Safety Report 9994649 (Version 4)
Quarter: 2014Q2

REPORT INFORMATION
  Report Type: Spontaneous
  Country: IT (occurrence: IT)
  Receive Date: 20140311
  Receipt Date: 20140408
  Transmission Date: 20141212
  Serious: Yes (Hospitalization)
  Sender: FDA-Public Use
  Company Number: IT-RANBAXY-2014RR-78775

PATIENT
  Age: 85 Year
  Sex: Female

DRUGS (3)
  1. AMOXICILLIN [Suspect]
     Indication: BRONCHITIS
     Dosage: 1 DF, DAILY
     Route: 048
     Dates: start: 20140131, end: 20140205
  2. VALSARTAN [Interacting]
     Indication: HYPERTENSION
     Dosage: 1 DF, DAILY
     Route: 048
     Dates: start: 20080623, end: 20140205
  3. COUMADIN [Interacting]
     Indication: ATRIAL FIBRILLATION
     Dosage: 1 DF, DAILY
     Route: 048
     Dates: start: 20080703, end: 20140205

REACTIONS (4)
  - Angioedema [Recovered/Resolved]
  - International normalised ratio increased [Recovered/Resolved]
  - Urticaria [Recovered/Resolved]
  - Drug interaction [Recovered/Resolved]
